FAERS Safety Report 19967679 (Version 1)
Quarter: 2021Q4

REPORT INFORMATION
  Report Type: Spontaneous
  Country: US (occurrence: US)
  Receive Date: 20211018
  Receipt Date: 20211018
  Transmission Date: 20220304
  Serious: Yes (Hospitalization)
  Sender: FDA-Public Use
  Company Number: None

PATIENT
  Age: 78 Year
  Sex: Female

DRUGS (9)
  1. GLEEVEC [Suspect]
     Active Substance: IMATINIB MESYLATE
     Indication: Arteriosclerosis coronary artery
     Route: 048
     Dates: start: 20180210
  2. ISOSORBIDE MONONITRATE [Concomitant]
     Active Substance: ISOSORBIDE MONONITRATE
  3. GLIPIZIDE [Concomitant]
     Active Substance: GLIPIZIDE
  4. PANTOPRAZOLE [Concomitant]
     Active Substance: PANTOPRAZOLE
  5. LEVOTHYROXINE [Concomitant]
     Active Substance: LEVOTHYROXINE
  6. FENTANYL [Concomitant]
     Active Substance: FENTANYL
  7. DULOXETINE [Concomitant]
     Active Substance: DULOXETINE
  8. LORAZEPAM [Concomitant]
     Active Substance: LORAZEPAM
  9. SODIUM CHLORIDE [Concomitant]
     Active Substance: SODIUM CHLORIDE

REACTIONS (1)
  - Leg amputation [None]

NARRATIVE: CASE EVENT DATE: 20210801
